FAERS Safety Report 18622940 (Version 1)
Quarter: 2020Q4

REPORT INFORMATION
  Report Type: Spontaneous
  Country: US (occurrence: US)
  Receive Date: 20201216
  Receipt Date: 20201216
  Transmission Date: 20210114
  Serious: No
  Sender: FDA-Public Use
  Company Number: None

PATIENT
  Sex: Female

DRUGS (15)
  1. METHOTREXATE. [Suspect]
     Active Substance: METHOTREXATE
  2. HYDROXYCHOLOROQUINE [Concomitant]
  3. FOLIC ACID. [Concomitant]
     Active Substance: FOLIC ACID
  4. OMEPRAZOLE. [Concomitant]
     Active Substance: OMEPRAZOLE
  5. PILOCARPINE. [Concomitant]
     Active Substance: PILOCARPINE
  6. HYDROCODONE BITARTRATE AND ACETAMINOPHEN [Concomitant]
     Active Substance: ACETAMINOPHEN\HYDROCODONE BITARTRATE
  7. AMBRISENTAN [Suspect]
     Active Substance: AMBRISENTAN
     Indication: PULMONARY ARTERIAL HYPERTENSION
     Route: 051
  8. METHOTREXATE. [Concomitant]
     Active Substance: METHOTREXATE
  9. PREDNISONE. [Concomitant]
     Active Substance: PREDNISONE
  10. LATANOPROST. [Concomitant]
     Active Substance: LATANOPROST
  11. RESTASIS [Concomitant]
     Active Substance: CYCLOSPORINE
  12. AMLODIPINE [Concomitant]
     Active Substance: AMLODIPINE BESYLATE
  13. METOPROLOL. [Concomitant]
     Active Substance: METOPROLOL
  14. METOPROLOL. [Suspect]
     Active Substance: METOPROLOL
  15. GABAPENTIN. [Concomitant]
     Active Substance: GABAPENTIN

REACTIONS (1)
  - Headache [None]
